FAERS Safety Report 13854705 (Version 1)
Quarter: 2017Q3

REPORT INFORMATION
  Report Type: Spontaneous
  Country: AT (occurrence: AT)
  Receive Date: 20170810
  Receipt Date: 20170810
  Transmission Date: 20171127
  Serious: Yes (Hospitalization, Other)
  Sender: FDA-Public Use
  Company Number: AT-IPSEN BIOSCIENCE, INC.-MER-2017-000293

PATIENT

DRUGS (2)
  1. ONIVYDE [Suspect]
     Active Substance: IRINOTECAN HYDROCHLORIDE
     Indication: PANCREATIC CARCINOMA
     Dosage: 133.29 MG, UNK
     Route: 065
     Dates: start: 20160611
  2. FLUOROURACIL. [Suspect]
     Active Substance: FLUOROURACIL
     Indication: PANCREATIC CARCINOMA
     Dosage: 3883.02 MG, UNK
     Route: 065
     Dates: start: 20160611

REACTIONS (4)
  - General physical health deterioration [Unknown]
  - Neutropenia [Recovered/Resolved]
  - Febrile neutropenia [Unknown]
  - Ill-defined disorder [Unknown]

NARRATIVE: CASE EVENT DATE: 20160611
